FAERS Safety Report 17203263 (Version 4)
Quarter: 2020Q1

REPORT INFORMATION
  Report Type: Spontaneous
  Country: BE (occurrence: BE)
  Receive Date: 20191226
  Receipt Date: 20200220
  Transmission Date: 20200409
  Serious: Yes (Hospitalization, Other)
  Sender: FDA-Public Use
  Company Number: BE-SHIRE-BE201944390

PATIENT

DRUGS (2)
  1. 476 (MESALAZINE/MESALAMINE) [Suspect]
     Active Substance: MESALAMINE
     Indication: FOETAL EXPOSURE DURING PREGNANCY
     Dosage: 3 GRAM, 1X/DAY:QD
     Route: 064
  2. INFLIXIMAB [Suspect]
     Active Substance: INFLIXIMAB
     Indication: FOETAL EXPOSURE DURING PREGNANCY
     Dosage: UNK
     Route: 065

REACTIONS (9)
  - Oral candidiasis [Unknown]
  - Foetal exposure during pregnancy [Unknown]
  - Neutropenia neonatal [Unknown]
  - Pharyngitis [Unknown]
  - Incorrect route of product administration [Unknown]
  - Otitis media acute [Unknown]
  - Respiratory tract infection [Unknown]
  - Tonsillitis [Unknown]
  - Pyrexia [Unknown]
